FAERS Safety Report 8352242-0 (Version None)
Quarter: 2012Q2

REPORT INFORMATION
  Report Type: 
  Country: None (occurrence: None)
  Receive Date: 20120511
  Receipt Date: 20120430
  Transmission Date: 20120825
  Serious: Yes (Other)
  Sender: FDA-Public Use
  Company Number: US-JNJFOC-20120501193

PATIENT

DRUGS (2)
  1. STELARA [Suspect]
     Indication: CROHN'S DISEASE
     Route: 058
  2. STELARA [Suspect]
     Indication: PSORIASIS
     Route: 058

REACTIONS (2)
  - GRANULOMA [None]
  - BLOOD DISORDER [None]
